FAERS Safety Report 9048945 (Version 1)
Quarter: 2013Q1

REPORT INFORMATION
  Report Type: Spontaneous
  Country: US (occurrence: None)
  Receive Date: 20130116
  Receipt Date: 20130116
  Transmission Date: 20140127
  Serious: Yes (Death)
  Sender: FDA-Public Use
  Company Number: CL-463-2013

PATIENT
  Age: 84 Year
  Sex: Female

DRUGS (3)
  1. METRONIDAZOLE [Suspect]
  2. FLURAZEPAM [Suspect]
  3. PHENOTHIAZINE [Suspect]

REACTIONS (3)
  - Completed suicide [None]
  - Drug interaction [None]
  - Toxicity to various agents [None]
